FAERS Safety Report 7589397-1 (Version None)
Quarter: 2011Q3

REPORT INFORMATION
  Report Type: 
  Country: None (occurrence: None)
  Receive Date: 20110705
  Receipt Date: 20110616
  Transmission Date: 20111222
  Serious: No
  Sender: FDA-Public Use
  Company Number: US-B.I. PHARMACEUTICALS,INC./RIDGEFIELD-2011-BP-15676BP

PATIENT
  Sex: Female

DRUGS (2)
  1. RYTHMOL [Concomitant]
     Indication: HEART RATE IRREGULAR
     Route: 048
     Dates: start: 20110615
  2. PRADAXA [Suspect]
     Indication: ATRIAL FIBRILLATION

REACTIONS (2)
  - CHEST DISCOMFORT [None]
  - RASH [None]
